FAERS Safety Report 20945682 (Version 2)
Quarter: 2023Q2

REPORT INFORMATION
  Report Type: Spontaneous
  Country: JP (occurrence: JP)
  Receive Date: 20220610
  Receipt Date: 20230428
  Transmission Date: 20230721
  Serious: Yes (Death, Other)
  Sender: FDA-Public Use
  Company Number: JP-GLAXOSMITHKLINE-JP2020JPN262231

PATIENT

DRUGS (104)
  1. MEPOLIZUMAB [Suspect]
     Active Substance: MEPOLIZUMAB
     Indication: Eosinophilic granulomatosis with polyangiitis
     Dosage: 100 MG
     Route: 058
     Dates: start: 20190204, end: 20190304
  2. MEPOLIZUMAB [Suspect]
     Active Substance: MEPOLIZUMAB
     Dosage: 300 MG
     Route: 058
     Dates: start: 20190305, end: 20190305
  3. MEPOLIZUMAB [Suspect]
     Active Substance: MEPOLIZUMAB
     Dosage: 300 MG
     Route: 058
     Dates: start: 20190404, end: 20190404
  4. MEPOLIZUMAB [Suspect]
     Active Substance: MEPOLIZUMAB
     Dosage: 300 MG
     Route: 058
     Dates: start: 20190502, end: 20190502
  5. MEPOLIZUMAB [Suspect]
     Active Substance: MEPOLIZUMAB
     Dosage: 300 MG
     Route: 058
     Dates: start: 20190606, end: 20190606
  6. MEPOLIZUMAB [Suspect]
     Active Substance: MEPOLIZUMAB
     Dosage: 300 MG
     Route: 058
     Dates: start: 20190704, end: 20190704
  7. MEPOLIZUMAB [Suspect]
     Active Substance: MEPOLIZUMAB
     Dosage: 300 MG
     Route: 058
     Dates: start: 20190926, end: 20190926
  8. MEPOLIZUMAB [Suspect]
     Active Substance: MEPOLIZUMAB
     Dosage: 300 MG
     Route: 058
     Dates: start: 20191031, end: 20191031
  9. MEPOLIZUMAB [Suspect]
     Active Substance: MEPOLIZUMAB
     Dosage: 300 MG
     Route: 058
     Dates: start: 20191212, end: 20191212
  10. MEPOLIZUMAB [Suspect]
     Active Substance: MEPOLIZUMAB
     Dosage: 300 MG
     Route: 058
     Dates: start: 20200402, end: 20200402
  11. MEPOLIZUMAB [Suspect]
     Active Substance: MEPOLIZUMAB
     Dosage: 300 MG
     Route: 058
     Dates: start: 20200507, end: 20200507
  12. MEPOLIZUMAB [Suspect]
     Active Substance: MEPOLIZUMAB
     Dosage: 300 MG
     Route: 058
     Dates: start: 20200702, end: 20200702
  13. MEPOLIZUMAB [Suspect]
     Active Substance: MEPOLIZUMAB
     Dosage: 300 MG
     Route: 058
     Dates: start: 20200806, end: 20200806
  14. MEPOLIZUMAB [Suspect]
     Active Substance: MEPOLIZUMAB
     Dosage: 300 MG
     Route: 058
     Dates: start: 20200903, end: 20200903
  15. MEPOLIZUMAB [Suspect]
     Active Substance: MEPOLIZUMAB
     Dosage: 300 MG
     Route: 058
     Dates: start: 20201001, end: 20201001
  16. MEPOLIZUMAB [Suspect]
     Active Substance: MEPOLIZUMAB
     Dosage: 300 MG
     Route: 058
     Dates: start: 20201107, end: 20201107
  17. MEPOLIZUMAB [Suspect]
     Active Substance: MEPOLIZUMAB
     Dosage: 300 MG
     Route: 058
     Dates: start: 20201203, end: 20201203
  18. MEPOLIZUMAB [Suspect]
     Active Substance: MEPOLIZUMAB
     Dosage: 300 MG
     Route: 058
     Dates: start: 20210104, end: 20210104
  19. PREDONINE [Suspect]
     Active Substance: PREDNISOLONE
     Indication: Eosinophilic granulomatosis with polyangiitis
     Dosage: 18 MG, 1D
     Dates: end: 20190301
  20. PREDONINE [Suspect]
     Active Substance: PREDNISOLONE
     Dosage: 17 MG, 1D
     Dates: start: 20190302, end: 20190329
  21. PREDONINE [Suspect]
     Active Substance: PREDNISOLONE
     Dosage: 15 MG, 1D
     Dates: start: 20190330, end: 20190516
  22. PREDONINE [Suspect]
     Active Substance: PREDNISOLONE
     Dosage: 12.5 MG, 1D
     Dates: start: 20190517, end: 20191010
  23. PREDONINE [Suspect]
     Active Substance: PREDNISOLONE
     Dosage: 11 MG, 1D
     Dates: start: 20191011, end: 20191219
  24. PREDONINE [Suspect]
     Active Substance: PREDNISOLONE
     Dosage: 10 MG, 1D
     Dates: start: 20191220, end: 20210910
  25. SYMBICORT [Concomitant]
     Active Substance: BUDESONIDE\FORMOTEROL FUMARATE DIHYDRATE
     Dosage: 2 DF, TID
  26. DEXAMETHASONE SODIUM PHOSPHATE [Concomitant]
     Active Substance: DEXAMETHASONE SODIUM PHOSPHATE
     Dosage: 6.6 MG, 1D
     Dates: start: 20190223, end: 20190225
  27. DEXAMETHASONE SODIUM PHOSPHATE [Concomitant]
     Active Substance: DEXAMETHASONE SODIUM PHOSPHATE
     Dosage: 6.6 MG, 1D
     Dates: start: 20190418, end: 20190419
  28. DEXAMETHASONE SODIUM PHOSPHATE [Concomitant]
     Active Substance: DEXAMETHASONE SODIUM PHOSPHATE
     Dosage: 6.6 MG, 1D
     Dates: start: 20190524, end: 20190524
  29. DEXAMETHASONE SODIUM PHOSPHATE [Concomitant]
     Active Substance: DEXAMETHASONE SODIUM PHOSPHATE
     Dosage: 6.6 MG, 1D
     Dates: start: 20190620, end: 20190620
  30. DEXAMETHASONE SODIUM PHOSPHATE [Concomitant]
     Active Substance: DEXAMETHASONE SODIUM PHOSPHATE
     Dosage: 6.6 MG, 1D
     Dates: start: 20190627, end: 20190627
  31. DEXAMETHASONE SODIUM PHOSPHATE [Concomitant]
     Active Substance: DEXAMETHASONE SODIUM PHOSPHATE
     Dosage: 6.6 MG, 1D
     Dates: start: 20190704, end: 20190704
  32. DEXAMETHASONE SODIUM PHOSPHATE [Concomitant]
     Active Substance: DEXAMETHASONE SODIUM PHOSPHATE
     Dosage: 6.6 MG, 1D
     Dates: start: 20190718, end: 20190720
  33. DEXAMETHASONE SODIUM PHOSPHATE [Concomitant]
     Active Substance: DEXAMETHASONE SODIUM PHOSPHATE
     Dosage: 6.6 MG, 1D
     Dates: start: 20190822, end: 20190822
  34. DEXAMETHASONE SODIUM PHOSPHATE [Concomitant]
     Active Substance: DEXAMETHASONE SODIUM PHOSPHATE
     Dosage: 6.6 MG, 1D
     Dates: start: 20190824, end: 20190824
  35. DEXAMETHASONE SODIUM PHOSPHATE [Concomitant]
     Active Substance: DEXAMETHASONE SODIUM PHOSPHATE
     Dosage: 6.6 MG, 1D
     Dates: start: 20190827, end: 20190827
  36. DEXAMETHASONE SODIUM PHOSPHATE [Concomitant]
     Active Substance: DEXAMETHASONE SODIUM PHOSPHATE
     Dosage: 6.6 MG, 1D
     Dates: start: 20190829, end: 20190829
  37. DEXAMETHASONE SODIUM PHOSPHATE [Concomitant]
     Active Substance: DEXAMETHASONE SODIUM PHOSPHATE
     Dosage: 6.6 MG, 1D
     Dates: start: 20190912, end: 20190912
  38. DEXAMETHASONE SODIUM PHOSPHATE [Concomitant]
     Active Substance: DEXAMETHASONE SODIUM PHOSPHATE
     Dosage: 6.6 MG, 1D
     Dates: start: 20190919, end: 20190919
  39. DEXAMETHASONE SODIUM PHOSPHATE [Concomitant]
     Active Substance: DEXAMETHASONE SODIUM PHOSPHATE
     Dosage: 6.6 MG, 1D
     Dates: start: 20191003, end: 20191003
  40. DEXAMETHASONE SODIUM PHOSPHATE [Concomitant]
     Active Substance: DEXAMETHASONE SODIUM PHOSPHATE
     Dosage: 6.6 MG, 1D
     Dates: start: 20191024, end: 20191024
  41. DEXAMETHASONE SODIUM PHOSPHATE [Concomitant]
     Active Substance: DEXAMETHASONE SODIUM PHOSPHATE
     Dosage: 6.6 MG, 1D
     Dates: start: 20191026, end: 20191026
  42. DEXAMETHASONE SODIUM PHOSPHATE [Concomitant]
     Active Substance: DEXAMETHASONE SODIUM PHOSPHATE
     Dosage: 6.6 MG, 1D
     Dates: start: 20201015, end: 20201015
  43. DEXAMETHASONE SODIUM PHOSPHATE [Concomitant]
     Active Substance: DEXAMETHASONE SODIUM PHOSPHATE
     Dosage: 6.6 MG, 1D
     Dates: start: 20201022, end: 20201022
  44. DEXAMETHASONE SODIUM PHOSPHATE [Concomitant]
     Active Substance: DEXAMETHASONE SODIUM PHOSPHATE
     Dosage: 6.6 MG, 1D
     Dates: start: 20201212, end: 20201212
  45. CILNIDIPINE [Concomitant]
     Active Substance: CILNIDIPINE
     Dosage: UNK
  46. MAGNESIUM OXIDE [Concomitant]
     Active Substance: MAGNESIUM OXIDE
     Dosage: UNK
  47. ITRIZOLE CAPSULES [Concomitant]
     Indication: Infection prophylaxis
     Dosage: UNK
  48. LANSOPRAZOLE [Concomitant]
     Active Substance: LANSOPRAZOLE
     Indication: Prophylaxis against gastrointestinal ulcer
     Dosage: UNK
  49. CARBOCYSTEINE [Concomitant]
     Active Substance: CARBOCYSTEINE
     Dosage: UNK
  50. MONTELUKAST SODIUM [Concomitant]
     Active Substance: MONTELUKAST SODIUM
     Dosage: UNK
  51. MAGNESIUM OXIDE [Concomitant]
     Active Substance: MAGNESIUM OXIDE
     Dosage: UNK
  52. TULOBUTEROL TAPE [Concomitant]
     Dosage: UNK
  53. SULFAMETHOXAZOLE\TRIMETHOPRIM [Concomitant]
     Active Substance: SULFAMETHOXAZOLE\TRIMETHOPRIM
     Indication: Antifungal prophylaxis
     Dosage: UNK
  54. CLARITHROMYCIN [Concomitant]
     Active Substance: CLARITHROMYCIN
     Dosage: UNK
  55. BONALON ORAL JELLY [Concomitant]
     Dosage: UNK
  56. INDOMETHACIN [Concomitant]
     Active Substance: INDOMETHACIN
     Dosage: UNK
  57. OLODATEROL HYDROCHLORIDE\TIOTROPIUM BROMIDE MONOHYDRATE [Concomitant]
     Active Substance: OLODATEROL HYDROCHLORIDE\TIOTROPIUM BROMIDE MONOHYDRATE
     Dosage: UNK
  58. HEPARINOID OIL-BASED CREAM 0.3% [Concomitant]
     Dosage: UNK
  59. NORSPAN [Concomitant]
     Active Substance: BUPRENORPHINE
     Dosage: UNK
  60. INTAL [Concomitant]
     Active Substance: CROMOLYN SODIUM
     Dosage: UNK
  61. PROCATEROL HYDROCHLORIDE [Concomitant]
     Active Substance: PROCATEROL HYDROCHLORIDE
     Dosage: UNK
  62. TRAMCET COMBINATION TABLETS [Concomitant]
     Dosage: UNK
  63. AMBROXOL HYDROCHLORIDE [Concomitant]
     Active Substance: AMBROXOL HYDROCHLORIDE
     Dosage: UNK
  64. SENNOSIDES [Concomitant]
     Active Substance: SENNOSIDES
     Dosage: UNK
  65. CEFZON [Concomitant]
     Dosage: UNK
  66. MIYA-BM [Concomitant]
     Active Substance: CLOSTRIDIUM BUTYRICUM SPORES STRAIN M-55
     Indication: Prophylaxis against diarrhoea
     Dosage: UNK
  67. CALONAL [Concomitant]
     Active Substance: ACETAMINOPHEN
     Dosage: UNK
  68. SODIUM PICOSULFATE [Concomitant]
     Active Substance: SODIUM PICOSULFATE
     Dosage: UNK
  69. BISACODYL [Concomitant]
     Active Substance: BISACODYL
     Dosage: UNK
  70. MOVICOL (MACROGOL + SODIUM BICARBONATE + SODIUM CHLORIDE + POTASSIUM C [Concomitant]
     Dosage: UNK
  71. CEFTRIAXONE SODIUM [Concomitant]
     Active Substance: CEFTRIAXONE SODIUM
     Indication: Pneumonia bacterial
     Dosage: UNK
     Dates: start: 20190523, end: 20190603
  72. ELCATONIN [Concomitant]
     Active Substance: ELCATONIN
     Dosage: UNK
  73. EVENITY [Concomitant]
     Active Substance: ROMOSOZUMAB-AQQG
     Dosage: UNK
  74. DEXTROMETHORPHAN HYDROBROMIDE [Concomitant]
     Active Substance: DEXTROMETHORPHAN HYDROBROMIDE
  75. ALLEGRA [Concomitant]
     Active Substance: FEXOFENADINE HYDROCHLORIDE
  76. AMBROXOL HYDROCHLORIDE [Concomitant]
     Active Substance: AMBROXOL HYDROCHLORIDE
  77. HYALEIN (HYALURONATE SODIUM) [Concomitant]
     Indication: Dry eye
  78. PL [Concomitant]
     Active Substance: ACETAMINOPHEN\CAFFEINE\PROMETHAZINE\SALICYLAMIDE
     Indication: Nasopharyngitis
     Dosage: UNK
  79. HIRUDOID SOFT OINTMENT [Concomitant]
     Indication: Eczema asteatotic
     Dosage: UNK
     Dates: start: 20190627, end: 20190815
  80. LEVOFLOXACIN [Concomitant]
     Active Substance: LEVOFLOXACIN
  81. GARENOXACIN MESYLATE [Concomitant]
     Active Substance: GARENOXACIN MESYLATE
  82. SODIUM FERROUS CITRATE [Concomitant]
     Active Substance: SODIUM FERROUS CITRATE
     Indication: Iron deficiency anaemia
     Dosage: UNK
     Dates: start: 20191203, end: 20200716
  83. CARBAZOCHROME SODIUM SULFONATE [Concomitant]
     Active Substance: CARBAZOCHROME SODIUM SULFONATE
     Indication: Haemoptysis
     Dosage: UNK
     Dates: start: 20190801, end: 20190808
  84. CARBAZOCHROME SODIUM SULFONATE [Concomitant]
     Active Substance: CARBAZOCHROME SODIUM SULFONATE
     Dosage: UNK
     Dates: start: 20190816, end: 20190822
  85. TRANSAMIN [Concomitant]
     Active Substance: TRANEXAMIC ACID
     Indication: Haemoptysis
     Dosage: UNK
     Dates: start: 20190801, end: 20190808
  86. TRANSAMIN [Concomitant]
     Active Substance: TRANEXAMIC ACID
     Dosage: UNK
     Dates: start: 20190816, end: 20190822
  87. MEROPENEM [Concomitant]
     Active Substance: MEROPENEM
     Indication: Pneumonia bacterial
     Dosage: UNK
     Dates: start: 20191122, end: 20191205
  88. MEROPENEM [Concomitant]
     Active Substance: MEROPENEM
     Dosage: UNK
     Dates: start: 20191230, end: 20200209
  89. MEROPENEM [Concomitant]
     Active Substance: MEROPENEM
     Dosage: UNK
     Dates: start: 20200305, end: 20200326
  90. MEROPENEM [Concomitant]
     Active Substance: MEROPENEM
     Dosage: UNK
     Dates: start: 20200423, end: 20200506
  91. MEROPENEM [Concomitant]
     Active Substance: MEROPENEM
     Dosage: UNK
     Dates: start: 20200522, end: 20200625
  92. MICAFUNGIN SODIUM [Concomitant]
     Active Substance: MICAFUNGIN SODIUM
     Indication: Pneumonia bacterial
     Dosage: UNK
     Dates: start: 20191230, end: 20200209
  93. MICAFUNGIN SODIUM [Concomitant]
     Active Substance: MICAFUNGIN SODIUM
     Dosage: UNK
     Dates: start: 20200522, end: 20200625
  94. LOXOPROFEN SODIUM [Concomitant]
     Active Substance: LOXOPROFEN SODIUM
     Dosage: UNK
  95. LECICARBON SUPPOSITORY [Concomitant]
     Dosage: UNK
  96. ACETAMINOPHEN\TRAMADOL HYDROCHLORIDE [Concomitant]
     Active Substance: ACETAMINOPHEN\TRAMADOL HYDROCHLORIDE
     Dosage: UNK
  97. FINIBAX INTRAVENOUS DRIP INJECTION [Concomitant]
     Indication: Pneumonia bacterial
     Dosage: UNK
     Dates: start: 20190523, end: 20190603
  98. FINIBAX INTRAVENOUS DRIP INJECTION [Concomitant]
     Dosage: UNK
     Dates: start: 20190725, end: 20190807
  99. FINIBAX INTRAVENOUS DRIP INJECTION [Concomitant]
     Dosage: UNK
     Dates: start: 20190822, end: 20190904
  100. FINIBAX INTRAVENOUS DRIP INJECTION [Concomitant]
     Dosage: UNK
     Dates: start: 20191230, end: 20200209
  101. FINIBAX INTRAVENOUS DRIP INJECTION [Concomitant]
     Dosage: UNK
     Dates: start: 20200305, end: 20200326
  102. FINIBAX INTRAVENOUS DRIP INJECTION [Concomitant]
     Dosage: UNK
     Dates: start: 20200423, end: 20200506
  103. FINIBAX INTRAVENOUS DRIP INJECTION [Concomitant]
     Dosage: UNK
     Dates: start: 20200522, end: 20200625
  104. FINIBAX INTRAVENOUS DRIP INJECTION [Concomitant]
     Dosage: 1.5 G, 1D
     Route: 041
     Dates: start: 20210907, end: 20210911

REACTIONS (2)
  - Pneumonia bacterial [Fatal]
  - Pyrexia [Unknown]

NARRATIVE: CASE EVENT DATE: 20210907
